FAERS Safety Report 6596764-1 (Version None)
Quarter: 2010Q1

REPORT INFORMATION
  Report Type: 
  Country: None (occurrence: None)
  Receive Date: 20100212
  Receipt Date: 20100126
  Transmission Date: 20100710
  Serious: Yes (Hospitalization, Congenital Anomaly)
  Sender: FDA-Public Use
  Company Number: 005515

PATIENT
  Sex: Male

DRUGS (1)
  1. KEPPRA [Suspect]
     Dosage: 500 MG BID TRANSPLACENTAL
     Route: 064

REACTIONS (9)
  - BODY TEMPERATURE DECREASED [None]
  - BREECH PRESENTATION [None]
  - CAESAREAN SECTION [None]
  - CEREBRAL VENTRICLE DILATATION [None]
  - CONGENITAL CENTRAL NERVOUS SYSTEM ANOMALY [None]
  - FEEDING DISORDER NEONATAL [None]
  - GASTROOESOPHAGEAL REFLUX DISEASE [None]
  - JAUNDICE NEONATAL [None]
  - MATERNAL DRUGS AFFECTING FOETUS [None]
